FAERS Safety Report 7492943-X (Version None)
Quarter: 2011Q2

REPORT INFORMATION
  Report Type: 
  Country: None (occurrence: None)
  Receive Date: 20110520
  Receipt Date: 20110509
  Transmission Date: 20111010
  Serious: Yes (Hospitalization, Disabling)
  Sender: FDA-Public Use
  Company Number: FR-BRISTOL-MYERS SQUIBB COMPANY-15730971

PATIENT
  Age: 83 Year
  Sex: Female

DRUGS (12)
  1. IBUPROFEN [Concomitant]
  2. CLONAZEPAM [Concomitant]
  3. FOLIC ACID [Concomitant]
  4. IRBESARTAN [Concomitant]
  5. IMOVANE [Concomitant]
  6. ORENCIA [Suspect]
     Indication: RHEUMATOID ARTHRITIS
     Dosage: NO OF INF-65(I.E. 49G).LAST INF ON 28JAN11.
     Route: 042
     Dates: start: 20050601, end: 20110128
  7. SULFARLEM [Concomitant]
  8. PREDNISONE [Concomitant]
  9. METHOTREXATE [Concomitant]
  10. BISOPROLOL FUMARATE [Concomitant]
  11. ZOLEDRONIC ACID [Concomitant]
     Dosage: INJECTION
     Dates: start: 20100501
  12. NEXIUM [Concomitant]

REACTIONS (2)
  - SYRINGOMYELIA [None]
  - DEMYELINATING POLYNEUROPATHY [None]
